FAERS Safety Report 14062197 (Version 1)
Quarter: 2017Q4

REPORT INFORMATION
  Report Type: Spontaneous
  Country: US (occurrence: US)
  Receive Date: 20171009
  Receipt Date: 20171009
  Transmission Date: 20180321
  Serious: No
  Sender: FDA-Public Use
  Company Number: US-PFIZER INC-2017429736

PATIENT
  Age: 77 Year
  Sex: Male
  Weight: 98.43 kg

DRUGS (3)
  1. LYRICA [Suspect]
     Active Substance: PREGABALIN
     Indication: SCIATICA
     Dosage: 150 MG, 3X/DAY (TOOK 2 OF THE 75 MG CAPSULES)
  2. LYRICA [Suspect]
     Active Substance: PREGABALIN
     Dosage: 300 MG (2 OF THE 150MG CAPSULES)
  3. LYRICA [Suspect]
     Active Substance: PREGABALIN
     Dosage: 150 MG, 2X/DAY
     Route: 048
     Dates: start: 20170919

REACTIONS (5)
  - Swelling face [Recovered/Resolved]
  - Drug ineffective [Unknown]
  - Wheezing [Not Recovered/Not Resolved]
  - Weight increased [Not Recovered/Not Resolved]
  - Peripheral swelling [Recovered/Resolved]

NARRATIVE: CASE EVENT DATE: 201709
